FAERS Safety Report 6603799-9 (Version None)
Quarter: 2010Q1

REPORT INFORMATION
  Report Type: 
  Country: None (occurrence: None)
  Receive Date: 20100226
  Receipt Date: 20090204
  Transmission Date: 20100710
  Serious: No
  Sender: FDA-Public Use
  Company Number: A0766884A

PATIENT
  Age: 65 Year
  Sex: Female

DRUGS (2)
  1. LAMICTAL CD [Suspect]
     Indication: DRUG USE FOR UNKNOWN INDICATION
     Route: 048
     Dates: start: 20090128
  2. CLOZARIL [Concomitant]

REACTIONS (3)
  - HYPOKINESIA [None]
  - MUSCLE RIGIDITY [None]
  - MUSCULOSKELETAL STIFFNESS [None]
